FAERS Safety Report 5942474-0 (Version None)
Quarter: 2008Q4

REPORT INFORMATION
  Report Type: 
  Country: None (occurrence: None)
  Receive Date: 20081105
  Receipt Date: 20081024
  Transmission Date: 20090506
  Serious: Yes (Other)
  Sender: FDA-Public Use
  Company Number: FR-PFIZER INC-2008083651

PATIENT
  Sex: Male
  Weight: 67 kg

DRUGS (1)
  1. CHAMPIX [Suspect]
     Dates: start: 20080916, end: 20080930

REACTIONS (2)
  - ARTHRALGIA [None]
  - PERIPHLEBITIS [None]
